FAERS Safety Report 21188929 (Version 4)
Quarter: 2022Q4

REPORT INFORMATION
  Report Type: Spontaneous
  Country: JP (occurrence: JP)
  Receive Date: 20220809
  Receipt Date: 20221015
  Transmission Date: 20230113
  Serious: Yes (Other)
  Sender: FDA-Public Use
  Company Number: JP-AMGEN-JPNSP2022134650

PATIENT
  Sex: Male

DRUGS (3)
  1. REPATHA [Suspect]
     Active Substance: EVOLOCUMAB
     Indication: Hypercholesterolaemia
     Dosage: 140 MILLIGRAM, Q2WK
     Route: 058
     Dates: start: 20220731
  2. ASPIRIN [Suspect]
     Active Substance: ASPIRIN
     Indication: Myocardial ischaemia
     Dosage: 100 MILLIGRAM, QD
     Route: 065
     Dates: end: 20220802
  3. PRASUGREL HYDROCHLORIDE [Suspect]
     Active Substance: PRASUGREL HYDROCHLORIDE
     Indication: Myocardial ischaemia
     Dosage: 3.5 MILLIGRAM, QD
     Route: 065
     Dates: end: 20220802

REACTIONS (2)
  - Melaena [Recovered/Resolved]
  - Rectal cancer [Recovered/Resolved]

NARRATIVE: CASE EVENT DATE: 20220731
